FAERS Safety Report 11130576 (Version 1)
Quarter: 2015Q2

REPORT INFORMATION
  Report Type: Spontaneous
  Country: US (occurrence: None)
  Receive Date: 20150520
  Receipt Date: 20150520
  Transmission Date: 20150821
  Serious: Yes (Death)
  Sender: FDA-Public Use
  Company Number: US-H14001-15-00726

PATIENT
  Age: 22 Day
  Sex: Female
  Weight: 1.58 kg

DRUGS (11)
  1. FLUCONAZOLE. [Suspect]
     Active Substance: FLUCONAZOLE
     Indication: NEONATAL CANDIDA INFECTION
     Dosage: 10 G PER (KG ONC DAILY) (NOT OTHERWISE SPECIFIED)
     Route: 042
  2. IMMUNOGLOBULIN [Concomitant]
     Active Substance: HUMAN IMMUNOGLOBULIN G
  3. DEFEROXAMINE (DEFEROXAMINE) (DEFEROXAMINE) [Suspect]
     Active Substance: DEFEROXAMINE\DEFEROXAMINE MESYLATE
     Indication: PRODUCT USED FOR UNKNOWN INDICATION
  4. DIURETICS [Concomitant]
     Active Substance: UNSPECIFIED INGREDIENT
  5. FLUCONAZOLE. [Suspect]
     Active Substance: FLUCONAZOLE
     Indication: URINARY TRACT INFECTION FUNGAL
     Dosage: 10 G PER (KG ONC DAILY) (NOT OTHERWISE SPECIFIED)
     Route: 042
  6. OXYGEN. [Concomitant]
     Active Substance: OXYGEN
  7. STEROIDS (CORTICOSTEROIDS) [Concomitant]
     Active Substance: UNSPECIFIED INGREDIENT
  8. DOPAMINE [Concomitant]
     Active Substance: DOPAMINE\DOPAMINE HYDROCHLORIDE
  9. OXACILLIN [Concomitant]
     Active Substance: OXACILLIN SODIUM
  10. N-ACETYLCYSTEINE [Concomitant]
     Active Substance: ACETYLCYSTEINE
  11. VITAMIN E (TOCEPHEROL) [Concomitant]

REACTIONS (10)
  - Toxic epidermal necrolysis [None]
  - Cardiac arrest [None]
  - Haemochromatosis [None]
  - Respiratory distress [None]
  - Hypotension [None]
  - Multi-organ failure [None]
  - Bradycardia neonatal [None]
  - Sepsis [None]
  - Neonatal hypoxia [None]
  - Acinetobacter test positive [None]
